FAERS Safety Report 5651121-7 (Version None)
Quarter: 2008Q1

REPORT INFORMATION
  Report Type: 
  Country: None (occurrence: None)
  Receive Date: 20080131
  Receipt Date: 20071112
  Transmission Date: 20080703
  Serious: No
  Sender: FDA-Public Use
  Company Number: US200711002842

PATIENT
  Age: 30 Year
  Sex: Female

DRUGS (2)
  1. BYETTA [Suspect]
     Indication: GLUCOSE TOLERANCE IMPAIRED
     Dates: start: 20050101
  2. METFORMIN HCL [Concomitant]

REACTIONS (1)
  - BLOOD IMMUNOGLOBULIN G DECREASED [None]
